FAERS Safety Report 11424100 (Version 2)
Quarter: 2015Q3

REPORT INFORMATION
  Report Type: Spontaneous
  Country: US (occurrence: US)
  Receive Date: 20150827
  Receipt Date: 20150908
  Transmission Date: 20151125
  Serious: Yes (Other)
  Sender: FDA-Public Use
  Company Number: US-LPDUSPRD-20150644

PATIENT
  Age: 68 Year
  Sex: Male

DRUGS (1)
  1. OLANZAPINE FOR INJECTION (0517-0955-01) [Suspect]
     Active Substance: OLANZAPINE
     Dosage: DOSE UNKNOWN
     Route: 065

REACTIONS (1)
  - Neuroleptic malignant syndrome [Unknown]
